FAERS Safety Report 20512704 (Version 1)
Quarter: 2022Q1

REPORT INFORMATION
  Report Type: Spontaneous
  Country: US (occurrence: None)
  Receive Date: 20220224
  Receipt Date: 20220224
  Transmission Date: 20220423
  Serious: Yes (Life-Threatening, Other)
  Sender: FDA-Public Use
  Company Number: None

PATIENT
  Age: 43 Year
  Sex: Female
  Weight: 65.7 kg

DRUGS (1)
  1. RIMEGEPANT [Suspect]
     Active Substance: RIMEGEPANT
     Indication: Migraine
     Dosage: OTHER STRENGTH : 500;?OTHER QUANTITY : 2 2;?OTHER FREQUENCY : AS NEEDED;?
     Route: 048

REACTIONS (5)
  - Central nervous system infection [None]
  - Speech disorder [None]
  - Anger [None]
  - Therapeutic product effect incomplete [None]
  - Emotional distress [None]

NARRATIVE: CASE EVENT DATE: 20211227
